FAERS Safety Report 11818709 (Version 1)
Quarter: 2015Q4

REPORT INFORMATION
  Report Type: Spontaneous
  Country: US (occurrence: None)
  Receive Date: 20151209
  Receipt Date: 20151209
  Transmission Date: 20160305
  Serious: Yes (Hospitalization)
  Sender: FDA-Public Use
  Company Number: None

PATIENT
  Age: 85 Year
  Sex: Male
  Weight: 79 kg

DRUGS (10)
  1. ECOTRIN [Concomitant]
     Active Substance: ASPIRIN
  2. LISINOPRIL. [Suspect]
     Active Substance: LISINOPRIL
     Indication: HYPERTENSION
     Dosage: CHRONIC
     Route: 048
  3. ARANESP [Concomitant]
     Active Substance: DARBEPOETIN ALFA
  4. PRAVACHOL [Concomitant]
     Active Substance: PRAVASTATIN SODIUM
  5. CAPS [Concomitant]
  6. FLOMAX [Concomitant]
     Active Substance: TAMSULOSIN HYDROCHLORIDE
  7. DESYREL [Concomitant]
     Active Substance: TRAZODONE HYDROCHLORIDE
  8. TRIMETHOPRIM - SULFAMETHOXAZOLE [Suspect]
     Active Substance: SULFAMETHOXAZOLE\TRIMETHOPRIM
     Indication: NASOPHARYNGITIS
     Dosage: 800/160 MG, RECENT
     Route: 048
  9. PLAVIX [Concomitant]
     Active Substance: CLOPIDOGREL BISULFATE
  10. DELTASONE [Concomitant]
     Active Substance: PREDNISONE

REACTIONS (5)
  - Dizziness [None]
  - Bradycardia [None]
  - Acute kidney injury [None]
  - Hyperkalaemia [None]
  - Hypokalaemia [None]

NARRATIVE: CASE EVENT DATE: 20150723
